FAERS Safety Report 7353593-9 (Version None)
Quarter: 2011Q1

REPORT INFORMATION
  Report Type: 
  Country: None (occurrence: None)
  Receive Date: 20110315
  Receipt Date: 20110310
  Transmission Date: 20110831
  Serious: Yes (Disabling, Other)
  Sender: FDA-Public Use
  Company Number: US-PFIZER INC-2010181804

PATIENT
  Sex: Male

DRUGS (8)
  1. PERPHENAZINE [Concomitant]
     Indication: SCHIZOPHRENIA
     Dosage: UNK
     Dates: start: 19900101
  2. BENADRYL [Concomitant]
     Indication: SINUS DISORDER
     Dosage: UNK
     Dates: start: 19900101
  3. DIPHENHYDRAMINE [Concomitant]
     Indication: NASOPHARYNGITIS
     Dosage: UNK
     Dates: start: 20020101, end: 20090101
  4. DOXEPIN [Concomitant]
     Indication: DEPRESSION
     Dosage: UNK
     Dates: start: 19900101
  5. DOXEPIN [Concomitant]
     Indication: ANXIETY
  6. SERTRALINE [Concomitant]
     Indication: DEPRESSION
     Dosage: UNK
     Dates: start: 19900101
  7. CHANTIX [Suspect]
     Indication: SMOKING CESSATION THERAPY
     Dosage: STARTER PACK; CONTINUING PACK
     Dates: start: 20070323, end: 20070401
  8. DIPHENHYDRAMINE [Concomitant]
     Indication: NASAL CONGESTION

REACTIONS (6)
  - SUICIDE ATTEMPT [None]
  - DEPRESSION [None]
  - ANXIETY [None]
  - INTENTIONAL OVERDOSE [None]
  - SCHIZOPHRENIA [None]
  - ANGER [None]
